FAERS Safety Report 22114375 (Version 1)
Quarter: 2023Q1

REPORT INFORMATION
  Report Type: Spontaneous
  Country: CA (occurrence: None)
  Receive Date: 20230320
  Receipt Date: 20230320
  Transmission Date: 20230418
  Serious: Yes (Hospitalization)
  Sender: FDA-Public Use
  Company Number: CA-ROCHE-3308620

PATIENT
  Age: 66 Year
  Sex: Female
  Weight: 86 kg

DRUGS (13)
  1. TECENTRIQ [Suspect]
     Active Substance: ATEZOLIZUMAB
     Indication: Small cell lung cancer
     Route: 041
  2. AMLODIPINE [Concomitant]
     Active Substance: AMLODIPINE BESYLATE
     Route: 065
  3. CARBOPLATIN [Concomitant]
     Active Substance: CARBOPLATIN
  4. DEXAMETHASONE [Concomitant]
     Active Substance: DEXAMETHASONE
  5. ETOPOSIDE [Concomitant]
     Active Substance: ETOPOSIDE
  6. GRANISETRON [Concomitant]
     Active Substance: GRANISETRON
  7. IPRATROPIUM [Concomitant]
     Active Substance: IPRATROPIUM
  8. KADIAN [Concomitant]
     Active Substance: MORPHINE SULFATE
  9. POLYETHYLENE GLYCOL 3350 [Concomitant]
     Active Substance: POLYETHYLENE GLYCOL 3350
  10. SENNOSIDES [Concomitant]
     Active Substance: SENNOSIDES
  11. MORPHINE SULFATE [Concomitant]
     Active Substance: MORPHINE SULFATE
  12. PROCHLORPERAZINE [Concomitant]
     Active Substance: PROCHLORPERAZINE
  13. VENTOLIN [Concomitant]
     Active Substance: ALBUTEROL SULFATE
     Dosage: INHALATION

REACTIONS (7)
  - Atrial fibrillation [Unknown]
  - Cardiac failure [Unknown]
  - Dizziness [Unknown]
  - Dyspnoea [Unknown]
  - Ejection fraction decreased [Unknown]
  - Heart rate increased [Unknown]
  - Ventricular hypokinesia [Unknown]
